FAERS Safety Report 24542552 (Version 2)
Quarter: 2025Q1

REPORT INFORMATION
  Report Type: Spontaneous
  Country: US (occurrence: US)
  Receive Date: 20241024
  Receipt Date: 20250129
  Transmission Date: 20250409
  Serious: No
  Sender: MANKIND PHARMA
  Company Number: US-MankindUS-000256

PATIENT
  Age: 93 Year
  Sex: Female

DRUGS (1)
  1. NITROFURANTOIN MONOHYDRATE MACROCRYSTALS [Suspect]
     Active Substance: NITROFURANTOIN\NITROFURANTOIN MONOHYDRATE
     Indication: Urinary tract infection

REACTIONS (6)
  - Incorrect dose administered [Unknown]
  - Wrong technique in product usage process [Unknown]
  - Product physical issue [Unknown]
  - Nausea [Unknown]
  - Vomiting [Unknown]
  - Product use complaint [Unknown]
